FAERS Safety Report 9251598 (Version 1)
Quarter: 2013Q1

REPORT INFORMATION
  Report Type: Spontaneous
  Country: US (occurrence: None)
  Receive Date: 20130305
  Receipt Date: 20130305
  Transmission Date: 20140127
  Serious: Yes (Other)
  Sender: FDA-Public Use
  Company Number: 163-21880-12082212

PATIENT
  Age: 71 Year
  Sex: Male
  Weight: 92.99 kg

DRUGS (7)
  1. REVLIMID [Suspect]
     Indication: PLASMA CELL MYELOMA
     Route: 048
     Dates: start: 201105
  2. COUMADIN (WARFARIN SODIUM) [Concomitant]
  3. DEXAMETHASONE (DEXAMETHASONE) [Concomitant]
  4. FISH OIL (FISH OIL) [Concomitant]
  5. SIMVASTATIN (SIMVASTATIN) [Concomitant]
  6. TAMSULOSIN (TAMSULOSIN) [Concomitant]
  7. VITAMIN D (ERGOCALCIFEROL) [Concomitant]

REACTIONS (1)
  - Monoclonal immunoglobulin present [None]
